FAERS Safety Report 6068554-X (Version None)
Quarter: 2009Q1

REPORT INFORMATION
  Report Type: 
  Country: None (occurrence: None)
  Receive Date: 20090203
  Receipt Date: 20090119
  Transmission Date: 20090719
  Serious: Yes (Hospitalization, Other)
  Sender: FDA-Public Use
  Company Number: 2008BM000125

PATIENT
  Age: 5 Year
  Sex: Male
  Weight: 13.5 kg

DRUGS (6)
  1. NAGLAZYME [Suspect]
     Indication: MUCOPOLYSACCHARIDOSIS VI
     Dosage: 15 MG;QW;IVDRP, ;QW;IVDRP
     Route: 041
     Dates: start: 20070201, end: 20080610
  2. NAGLAZYME [Suspect]
     Indication: MUCOPOLYSACCHARIDOSIS VI
     Dosage: 15 MG;QW;IVDRP, ;QW;IVDRP
     Route: 041
     Dates: start: 20080601, end: 20080923
  3. DOLIPRANE [Concomitant]
  4. PARACETAMOL [Concomitant]
  5. HYDROXYZINE [Concomitant]
  6. WARFARIN SODIUM [Concomitant]

REACTIONS (3)
  - GLOMERULONEPHRITIS MEMBRANOUS [None]
  - NEPHRITIC SYNDROME [None]
  - NEPHROTIC SYNDROME [None]
